FAERS Safety Report 13986355 (Version 2)
Quarter: 2017Q4

REPORT INFORMATION
  Report Type: Spontaneous
  Country: PT (occurrence: PT)
  Receive Date: 20170919
  Receipt Date: 20171006
  Transmission Date: 20180321
  Serious: Yes (Death, Hospitalization, Other)
  Sender: FDA-Public Use
  Company Number: PT-GLENMARK PHARMACEUTICALS-2017GMK028960

PATIENT
  Age: 56 Year
  Sex: Male

DRUGS (1)
  1. RILUZOLE. [Suspect]
     Active Substance: RILUZOLE
     Indication: AMYOTROPHIC LATERAL SCLEROSIS
     Dosage: UNK
     Route: 065

REACTIONS (5)
  - Pancreatitis relapsing [Unknown]
  - Disease complication [Fatal]
  - Pancreatic pseudocyst [Unknown]
  - Portal vein thrombosis [Unknown]
  - Pancreatitis necrotising [Unknown]
